FAERS Safety Report 7851582-9 (Version None)
Quarter: 2011Q4

REPORT INFORMATION
  Report Type: 
  Country: None (occurrence: None)
  Receive Date: 20111026
  Receipt Date: 20111019
  Transmission Date: 20120403
  Serious: Yes (Other)
  Sender: FDA-Public Use
  Company Number: CH-ROCHE-1005391

PATIENT
  Age: 57 Year
  Sex: Female

DRUGS (5)
  1. DOXORUBICIN HCL [Concomitant]
  2. CITALOPRAM HYDROBROMIDE [Concomitant]
     Indication: DYSTHYMIC DISORDER
  3. BEVACIZUMAB [Suspect]
     Indication: BREAST CANCER
     Dates: start: 20080301, end: 20090201
  4. IBUPROFEN [Concomitant]
     Indication: ARTHRALGIA
  5. PERINDOPRIL ERBUMINE [Concomitant]
     Indication: HYPERTENSION
     Dates: start: 20081201

REACTIONS (1)
  - TYPE IIB HYPERLIPIDAEMIA [None]
